FAERS Safety Report 25888214 (Version 1)
Quarter: 2025Q4

REPORT INFORMATION
  Report Type: Report from Study
  Country: US (occurrence: US)
  Receive Date: 20251007
  Receipt Date: 20251007
  Transmission Date: 20260117
  Serious: No
  Sender: ACADIA PHARMACEUTICALS
  Company Number: US-ACADIA PHARMACEUTICALS INC.-ACA-2025-PIM-010894

PATIENT
  Sex: Male

DRUGS (13)
  1. NUPLAZID [Suspect]
     Active Substance: PIMAVANSERIN TARTRATE
     Indication: Parkinson^s disease psychosis
     Dosage: 34 MILLIGRAM, QD
     Route: 048
     Dates: start: 20250911
  2. ACETAMINOPHEN [Concomitant]
     Active Substance: ACETAMINOPHEN
  3. CHOLECALCIFEROL [Concomitant]
     Active Substance: CHOLECALCIFEROL
  4. KETOCONAZOLE [Concomitant]
     Active Substance: KETOCONAZOLE
  5. MAGNESIUM [Concomitant]
     Active Substance: MAGNESIUM
  6. RIBOFLAVIN [Concomitant]
     Active Substance: RIBOFLAVIN
  7. RIVASTIGMINE [Concomitant]
     Active Substance: RIVASTIGMINE
  8. RYTARY [Concomitant]
     Active Substance: CARBIDOPA\LEVODOPA
  9. TERIPARATIDE [Concomitant]
     Active Substance: TERIPARATIDE
     Dosage: 560/2.24
  10. TRAZODONE [Concomitant]
     Active Substance: TRAZODONE HYDROCHLORIDE
  11. VENLAFAXINE [Concomitant]
     Active Substance: VENLAFAXINE HYDROCHLORIDE
  12. VITAMIN B2 [Concomitant]
     Active Substance: RIBOFLAVIN
     Dosage: 25MG/2ML
  13. VITAMIN D3 [Concomitant]
     Active Substance: CHOLECALCIFEROL
     Dosage: 2000 UNIT

REACTIONS (1)
  - Peripheral swelling [Unknown]
